FAERS Safety Report 4926435-6 (Version None)
Quarter: 2006Q1

REPORT INFORMATION
  Report Type: 
  Country: None (occurrence: None)
  Receive Date: 20060228
  Receipt Date: 20051121
  Transmission Date: 20060701
  Serious: No
  Sender: FDA-Public Use
  Company Number: US-GLAXOSMITHKLINE-A0583414A

PATIENT
  Age: 39 Year
  Sex: Male

DRUGS (12)
  1. LAMICTAL [Suspect]
     Indication: BIPOLAR DISORDER
     Dosage: 25MG ALTERNATE DAYS
     Route: 048
  2. FAMVIR [Concomitant]
  3. DEPAKOTE [Concomitant]
  4. METOPROLOL [Concomitant]
  5. REYATAZ [Concomitant]
     Route: 065
  6. NORVIR [Concomitant]
  7. VIREAD [Concomitant]
  8. VIDEX [Concomitant]
  9. DIAZEPAM [Concomitant]
  10. LUNESTA [Concomitant]
  11. PROZAC [Concomitant]
  12. ZYRTEC [Concomitant]

REACTIONS (1)
  - RASH [None]
